FAERS Safety Report 5014538-X (Version None)
Quarter: 2006Q2

REPORT INFORMATION
  Report Type: 
  Country: None (occurrence: None)
  Receive Date: 20060525
  Receipt Date: 20060517
  Transmission Date: 20061013
  Serious: Yes (Hospitalization, Disabling)
  Sender: FDA-Public Use
  Company Number: HQWYE613503APR06

PATIENT
  Age: 23 Year
  Sex: Female

DRUGS (11)
  1. PANTOPRAZOLE SODIUM [Suspect]
     Indication: GASTROOESOPHAGEAL REFLUX DISEASE
     Dosage: SEE IMAGE
     Route: 048
     Dates: start: 20050601, end: 20051201
  2. PANTOPRAZOLE SODIUM [Suspect]
     Indication: OEDEMA
     Dosage: SEE IMAGE
     Route: 048
     Dates: start: 20050601, end: 20051201
  3. PANTOPRAZOLE SODIUM [Suspect]
     Indication: GASTROOESOPHAGEAL REFLUX DISEASE
     Dosage: SEE IMAGE
     Route: 048
     Dates: start: 20051201, end: 20060210
  4. PANTOPRAZOLE SODIUM [Suspect]
     Indication: OEDEMA
     Dosage: SEE IMAGE
     Route: 048
     Dates: start: 20051201, end: 20060210
  5. DIANE (CYPROTERONE ACETATE/ETHINYLESTRADIOL,) [Suspect]
     Indication: ACNE
     Dosage: 1 DOSAGE FORM 1X PER 1 DAY ORAL
     Route: 048
     Dates: start: 20010101
  6. ZYRTEC [Suspect]
     Dosage: ^DF^
     Dates: start: 20060101
  7. TREPILINE (AMITRIPTYLINE) [Concomitant]
  8. CELESTAMINE TAB [Concomitant]
  9. ALLERGEN (CHLORPHENAMINE MALEATE) [Concomitant]
  10. SPERSALLERG (ANTAZOLINE HYDROCHLORIDE/TETRYZOLINE HYDROCHLORIDE) [Concomitant]
  11. PHENERGAN ^SPECIA^ (PROMETHAZINE HYDROCHLORIDE) [Concomitant]

REACTIONS (15)
  - ANGIONEUROTIC OEDEMA [None]
  - EAR PRURITUS [None]
  - EYE PRURITUS [None]
  - FOOD ALLERGY [None]
  - GASTROOESOPHAGEAL REFLUX DISEASE [None]
  - HEADACHE [None]
  - HYPERSENSITIVITY [None]
  - PARAESTHESIA [None]
  - PARAESTHESIA ORAL [None]
  - RHINORRHOEA [None]
  - SENSATION OF FOREIGN BODY [None]
  - SKIN TEST POSITIVE [None]
  - THROAT IRRITATION [None]
  - TONGUE DISORDER [None]
  - WEIGHT DECREASED [None]
